FAERS Safety Report 8508227-4 (Version None)
Quarter: 2012Q2

REPORT INFORMATION
  Report Type: 
  Country: None (occurrence: None)
  Receive Date: 20120405
  Receipt Date: 20080505
  Transmission Date: 20120825
  Serious: Yes (Other)
  Sender: FDA-Public Use
  Company Number: PHEH2008US02455

PATIENT
  Age: 71 Year
  Sex: Female
  Weight: 68.9 kg

DRUGS (1)
  1. RECLAST [Suspect]
     Indication: OSTEOPOROSIS POSTMENOPAUSAL
     Dosage: 5 MG. ,INFUSION
     Dates: start: 20080226, end: 20080226

REACTIONS (5)
  - FEELING ABNORMAL [None]
  - VISION BLURRED [None]
  - HYPERSENSITIVITY [None]
  - HEADACHE [None]
  - CHEST DISCOMFORT [None]
